FAERS Safety Report 18441533 (Version 5)
Quarter: 2021Q4

REPORT INFORMATION
  Report Type: Spontaneous
  Country: US (occurrence: US)
  Receive Date: 20201029
  Receipt Date: 20211008
  Transmission Date: 20220303
  Serious: No
  Sender: FDA-Public Use
  Company Number: US-PFIZER INC-2020363656

PATIENT
  Age: 82 Year
  Sex: Male
  Weight: 81.65 kg

DRUGS (1)
  1. TOVIAZ [Suspect]
     Active Substance: FESOTERODINE FUMARATE
     Indication: Pollakiuria
     Dosage: 8 MG, 1X/DAY
     Route: 048

REACTIONS (4)
  - Fibromyalgia [Unknown]
  - Speech disorder [Unknown]
  - Pain in jaw [Unknown]
  - Head injury [Unknown]
